FAERS Safety Report 9844818 (Version 1)
Quarter: 2014Q1

REPORT INFORMATION
  Report Type: Report from Study
  Country: CO (occurrence: CO)
  Receive Date: 20140127
  Receipt Date: 20140127
  Transmission Date: 20141002
  Serious: Yes (Other)
  Sender: FDA-Public Use
  Company Number: CO-ROCHE-1339090

PATIENT
  Sex: Female

DRUGS (1)
  1. LUCENTIS [Suspect]
     Indication: EYE HAEMORRHAGE
     Route: 050
     Dates: start: 20130215

REACTIONS (1)
  - Diabetic foot [Unknown]
